FAERS Safety Report 8782084 (Version 3)
Quarter: 2014Q1

REPORT INFORMATION
  Report Type: Spontaneous
  Country: US (occurrence: US)
  Receive Date: 20120913
  Receipt Date: 20140320
  Transmission Date: 20141002
  Serious: Yes (Hospitalization)
  Sender: FDA-Public Use
  Company Number: US-BAYER-2012-094445

PATIENT
  Age: 18 Year
  Sex: Female
  Weight: 111 kg

DRUGS (8)
  1. YAZ [Suspect]
     Indication: PREMENSTRUAL SYNDROME
     Dosage: UNK
     Dates: start: 2007, end: 2008
  2. YASMIN [Suspect]
     Indication: PREMENSTRUAL SYNDROME
     Dosage: UNK
     Dates: start: 2007, end: 2008
  3. ZINC [Concomitant]
     Indication: BLOOD ZINC DECREASED
     Dosage: 2 PILLS
  4. IBUPROFEN [Concomitant]
     Indication: MIGRAINE
     Dosage: UNK UNK, PRN
  5. ACETAMINOPHEN + COD. PHOSP. [Concomitant]
  6. AMOXICILLIN [Concomitant]
  7. LEVAQUIN [Concomitant]
  8. NEOMYCIN W/POLYMYCIN B/HYDROCORTISONE [Concomitant]

REACTIONS (9)
  - Cholecystitis chronic [None]
  - Gallbladder disorder [None]
  - Abdominal pain upper [None]
  - Injury [None]
  - General physical health deterioration [None]
  - Emotional distress [None]
  - Anhedonia [None]
  - Anxiety [None]
  - Pain [None]
